FAERS Safety Report 26062764 (Version 1)
Quarter: 2025Q4

REPORT INFORMATION
  Report Type: Spontaneous
  Country: EU (occurrence: EU)
  Receive Date: 20251119
  Receipt Date: 20251119
  Transmission Date: 20260118
  Serious: Yes (Hospitalization, Other)
  Sender: BAUSCH AND LOMB
  Company Number: EU-002147023-NVSC2020DE066156

PATIENT
  Age: 51 Year
  Sex: Female
  Weight: 65 kg

DRUGS (7)
  1. PREDNISOLONE ACETATE [Suspect]
     Active Substance: PREDNISOLONE ACETATE
     Indication: Psoriatic arthropathy
     Dosage: UNK
     Dates: start: 201803, end: 202001
  2. SECUKINUMAB [Suspect]
     Active Substance: SECUKINUMAB
     Indication: Psoriatic arthropathy
     Dosage: 150 MG, QMO
     Route: 058
     Dates: start: 20180322, end: 20190117
  3. SECUKINUMAB [Suspect]
     Active Substance: SECUKINUMAB
     Dosage: 300 MG, QMO
     Route: 058
     Dates: start: 20190117, end: 20190716
  4. ADALIMUMAB-ATTO [Suspect]
     Active Substance: ADALIMUMAB-ATTO
     Indication: Psoriatic arthropathy
     Dosage: 40 MG, Q2W
     Route: 058
     Dates: start: 20190820, end: 20200131
  5. NALOXONE HYDROCHLORIDE\TILIDINE HYDROCHLORIDE [Concomitant]
     Active Substance: NALOXONE HYDROCHLORIDE\TILIDINE HYDROCHLORIDE
     Indication: Psoriatic arthropathy
     Dosage: 50 MG, BID
     Route: 048
     Dates: start: 20180201
  6. ETORICOXIB [Concomitant]
     Active Substance: ETORICOXIB
     Indication: Psoriatic arthropathy
     Dosage: 60 MG, QD
     Route: 048
     Dates: start: 20171124
  7. AMITRIPTYLINE HYDROCHLORIDE [Concomitant]
     Active Substance: AMITRIPTYLINE HYDROCHLORIDE
     Indication: Depression
     Dosage: 25 MG, QD
     Dates: start: 20190304

REACTIONS (5)
  - Hodgkin^s disease [Unknown]
  - Mucosal inflammation [Unknown]
  - Oral herpes [Unknown]
  - Vertigo positional [Unknown]
  - Drug ineffective [Unknown]

NARRATIVE: CASE EVENT DATE: 20200131
